FAERS Safety Report 12498264 (Version 2)
Quarter: 2016Q3

REPORT INFORMATION
  Report Type: Spontaneous
  Country: JP (occurrence: JP)
  Receive Date: 20160627
  Receipt Date: 20160725
  Transmission Date: 20161109
  Serious: Yes (Life-Threatening)
  Sender: FDA-Public Use
  Company Number: JP-ROCHE-1782948

PATIENT
  Age: 63 Year
  Sex: Female
  Weight: 39 kg

DRUGS (11)
  1. FENTOS (JAPAN) [Suspect]
     Active Substance: FENTANYL
     Indication: CANCER PAIN
     Dosage: THE FRACTIONATION DOSE FREQUENCY IS UNCERTAIN. ?DOSE INTERVAL UNCERTAINTY
     Route: 062
     Dates: start: 20160613
  2. PERJETA [Suspect]
     Active Substance: PERTUZUMAB
     Indication: BREAST CANCER
     Dosage: DOSAGE IS UNCERTAIN. 420MG/14ML
     Route: 041
     Dates: start: 20160511, end: 20160511
  3. OXIFAST [Suspect]
     Active Substance: OXYCODONE
     Indication: CANCER PAIN
     Dosage: THE FRACTIONATION DOSE FREQUENCY IS UNCERTAIN. ?DOSE INTERVAL UNCERTAINTY
     Route: 042
     Dates: start: 20160526, end: 20160612
  4. HERCEPTIN [Suspect]
     Active Substance: TRASTUZUMAB
     Indication: BREAST CANCER
     Route: 041
     Dates: start: 20160601
  5. DOCETAXEL. [Suspect]
     Active Substance: DOCETAXEL
     Route: 041
     Dates: start: 20160601, end: 20160601
  6. HERCEPTIN [Suspect]
     Active Substance: TRASTUZUMAB
     Indication: BREAST CANCER
     Dosage: DOSAGE IS UNCERTAIN.
     Route: 041
     Dates: start: 20160511, end: 20160511
  7. PERJETA [Suspect]
     Active Substance: PERTUZUMAB
     Dosage: DOSAGE IS UNCERTAIN. 420MG/14ML
     Route: 041
     Dates: start: 20160601
  8. DOCETAXEL. [Suspect]
     Active Substance: DOCETAXEL
     Indication: BREAST CANCER
     Route: 041
     Dates: start: 20160511, end: 20160511
  9. OXYCONTIN [Suspect]
     Active Substance: OXYCODONE HYDROCHLORIDE
     Indication: BREAST CANCER
     Dosage: OTHER PURPOSES: COMPLICATION (CANCER PAIN)
     Route: 048
     Dates: start: 20160517, end: 20160525
  10. OXINORM (JAPAN) [Suspect]
     Active Substance: OXYCODONE HYDROCHLORIDE
     Indication: CANCER PAIN
     Dosage: TAKEN AS NEEDED
     Route: 048
     Dates: start: 20160508
  11. TS-1 [Suspect]
     Active Substance: GIMERACIL\OTERACIL\TEGAFUR
     Indication: BREAST CANCER
     Route: 048
     Dates: start: 20160622, end: 20160627

REACTIONS (4)
  - Decreased appetite [Recovered/Resolved]
  - Vomiting [Recovering/Resolving]
  - Nausea [Unknown]
  - Febrile neutropenia [Recovered/Resolved]

NARRATIVE: CASE EVENT DATE: 20160511
